FAERS Safety Report 4686140-0 (Version None)
Quarter: 2005Q2

REPORT INFORMATION
  Report Type: 
  Country: None (occurrence: None)
  Receive Date: 20050609
  Receipt Date: 20050525
  Transmission Date: 20051028
  Serious: Yes (Life-Threatening, Hospitalization, Disabling, Other)
  Sender: FDA-Public Use
  Company Number: US-MERCK-0505USA03065

PATIENT
  Age: 66 Year
  Sex: Female

DRUGS (9)
  1. ZETIA [Suspect]
     Indication: BLOOD CHOLESTEROL INCREASED
     Route: 048
     Dates: end: 20050401
  2. LIPITOR [Concomitant]
     Route: 065
  3. HUMIRA [Concomitant]
     Route: 065
  4. VICODIN [Concomitant]
     Route: 065
  5. SINEQUAN [Concomitant]
     Route: 065
  6. KLONOPIN [Concomitant]
     Route: 065
  7. SPIRONOLACTONE [Concomitant]
     Route: 065
  8. LEVOTHROID [Concomitant]
     Route: 065
  9. XANAX [Concomitant]
     Route: 065

REACTIONS (1)
  - OESOPHAGEAL RUPTURE [None]
